FAERS Safety Report 16155185 (Version 6)
Quarter: 2019Q4

REPORT INFORMATION
  Report Type: Spontaneous
  Country: US (occurrence: US)
  Receive Date: 20190403
  Receipt Date: 20191118
  Transmission Date: 20200122
  Serious: Yes (Death, Hospitalization)
  Sender: FDA-Public Use
  Company Number: US-TAKEDA-2019TUS017806

PATIENT
  Age: 78 Year
  Sex: Female

DRUGS (1)
  1. NINLARO [Suspect]
     Active Substance: IXAZOMIB CITRATE
     Indication: PLASMA CELL MYELOMA
     Dosage: 3 MILLIGRAM, 1/WEEK
     Route: 048
     Dates: start: 20181030

REACTIONS (10)
  - Influenza [Unknown]
  - Urinary tract infection [Unknown]
  - Drug ineffective [Unknown]
  - Platelet count decreased [Unknown]
  - Malaise [Unknown]
  - Nasopharyngitis [Unknown]
  - Death [Fatal]
  - Fall [Unknown]
  - Hip fracture [Unknown]
  - Asthenia [Unknown]

NARRATIVE: CASE EVENT DATE: 20191109
